FAERS Safety Report 8192165-3 (Version None)
Quarter: 2012Q1

REPORT INFORMATION
  Report Type: 
  Country: None (occurrence: None)
  Receive Date: 20120307
  Receipt Date: 20120229
  Transmission Date: 20120608
  Serious: Yes (Other)
  Sender: FDA-Public Use
  Company Number: BR-PFIZER INC-2012048069

PATIENT
  Age: 81 Year
  Sex: Male
  Weight: 62 kg

DRUGS (5)
  1. METFORMIN [Concomitant]
     Indication: DIABETES MELLITUS
     Dosage: A HALF OF TABLET OF 850MG IN THE MORNING AND AT DINNER AND ONE TABLET OF 850MG AT LUNCH TIME
  2. INDAPAMIDE [Concomitant]
     Indication: HYPERTENSION
     Dosage: UNK
  3. GLIMEPIRIDE [Concomitant]
     Indication: DIABETES MELLITUS
     Dosage: 2 MG, FASTING
  4. SUTENT [Suspect]
     Indication: METASTATIC RENAL CELL CARCINOMA
     Dosage: 50 MG, 1X/DAY (CYCLE 4X2)
     Route: 048
     Dates: start: 20120211
  5. ATACAND [Concomitant]
     Indication: HYPERTENSION
     Dosage: UNK

REACTIONS (8)
  - AGEUSIA [None]
  - NAUSEA [None]
  - TONGUE HAEMORRHAGE [None]
  - TONGUE DISORDER [None]
  - DECREASED APPETITE [None]
  - RASH [None]
  - TONGUE DISCOLOURATION [None]
  - VOMITING [None]
